FAERS Safety Report 17858347 (Version 1)
Quarter: 2020Q2

REPORT INFORMATION
  Report Type: Spontaneous
  Country: US (occurrence: US)
  Receive Date: 20200603
  Receipt Date: 20200603
  Transmission Date: 20200714
  Serious: Yes (Hospitalization)
  Sender: FDA-Public Use
  Company Number: None

PATIENT
  Age: 65 Year
  Sex: Male

DRUGS (2)
  1. SIROLIMUS 1MG TAB [Suspect]
     Active Substance: SIROLIMUS
     Indication: HEART TRANSPLANT
     Dosage: ?          OTHER DOSE:1 TAB M,W,F + 2 TA;?
     Route: 048
     Dates: start: 20160808
  2. TACROLIMUS  0.5MG [Suspect]
     Active Substance: TACROLIMUS
     Indication: HEART TRANSPLANT
     Route: 048
     Dates: start: 20150930

REACTIONS (2)
  - Cardiac failure [None]
  - Pneumonia [None]

NARRATIVE: CASE EVENT DATE: 20200521
